FAERS Safety Report 16234113 (Version 1)
Quarter: 2019Q2

REPORT INFORMATION
  Report Type: Spontaneous
  Country: US (occurrence: US)
  Receive Date: 20190424
  Receipt Date: 20190424
  Transmission Date: 20190711
  Serious: No
  Sender: FDA-Public Use
  Company Number: US-BAUSCH-BL-2019-010849

PATIENT
  Age: 80 Year
  Sex: Female

DRUGS (2)
  1. ALREX [Suspect]
     Active Substance: LOTEPREDNOL ETABONATE
     Dosage: TAPERING TO 2 DROPS DAILY
     Route: 047
     Dates: start: 2019
  2. ALREX [Suspect]
     Active Substance: LOTEPREDNOL ETABONATE
     Indication: HYPERSENSITIVITY
     Dosage: DAILY
     Route: 047
     Dates: start: 20190328, end: 2019

REACTIONS (3)
  - Nausea [Not Recovered/Not Resolved]
  - Intentional product use issue [Unknown]
  - Photophobia [Not Recovered/Not Resolved]

NARRATIVE: CASE EVENT DATE: 2019
